FAERS Safety Report 8522590-X (Version None)
Quarter: 2012Q3

REPORT INFORMATION
  Report Type: 
  Country: None (occurrence: None)
  Receive Date: 20120719
  Receipt Date: 20120710
  Transmission Date: 20120928
  Serious: No
  Sender: FDA-Public Use
  Company Number: US-B.I. PHARMACEUTICALS,INC./RIDGEFIELD-2011-BP-25360BP

PATIENT
  Sex: Female
  Weight: 103.42 kg

DRUGS (9)
  1. ALDACTONE [Concomitant]
     Indication: HYPERTENSION
     Dates: start: 20070101
  2. PRILOSEC [Concomitant]
     Indication: GASTROOESOPHAGEAL REFLUX DISEASE
     Dates: start: 20040101
  3. VICODIN [Concomitant]
     Indication: BACK PAIN
  4. METOPROLOL TARTRATE [Concomitant]
     Dosage: 50 MG
     Route: 048
     Dates: start: 20040101
  5. TRADJENTA [Suspect]
     Indication: TYPE 2 DIABETES MELLITUS
     Dosage: 5 MG
     Dates: start: 20111018, end: 20111022
  6. INDERAL [Concomitant]
     Indication: CROHN'S DISEASE
     Dates: start: 20040101
  7. MAVIK [Concomitant]
     Indication: HYPERTENSION
     Dates: start: 20070101
  8. LASIX [Concomitant]
     Indication: OEDEMA PERIPHERAL
  9. VITAMIN D [Concomitant]
     Dosage: 1000 MG

REACTIONS (3)
  - RASH [None]
  - SWELLING FACE [None]
  - LIP SWELLING [None]
